FAERS Safety Report 11325077 (Version 1)
Quarter: 2015Q3

REPORT INFORMATION
  Report Type: Report from Study
  Country: US (occurrence: US)
  Receive Date: 20150730
  Receipt Date: 20150730
  Transmission Date: 20151125
  Serious: Yes (Other)
  Sender: FDA-Public Use
  Company Number: US-GILEAD-2015-0158997

PATIENT
  Age: 66 Year
  Sex: Male

DRUGS (1)
  1. LEDIPASVIR/SOFOSBUVIR [Suspect]
     Active Substance: LEDIPASVIR\SOFOSBUVIR
     Indication: CHRONIC HEPATITIS C
     Dosage: 1 DF, QD
     Route: 048
     Dates: start: 20150402, end: 20150603

REACTIONS (10)
  - Cat scratch disease [Unknown]
  - Arthropod bite [Unknown]
  - Gastrointestinal disorder [Unknown]
  - Asthenia [Unknown]
  - Feeling abnormal [Unknown]
  - Muscle spasms [Unknown]
  - Headache [Unknown]
  - Back pain [Unknown]
  - Suicidal ideation [Unknown]
  - Arthritis [Unknown]

NARRATIVE: CASE EVENT DATE: 201506
